FAERS Safety Report 22192541 (Version 1)
Quarter: 2023Q2

REPORT INFORMATION
  Report Type: Report from Study
  Country: MX (occurrence: MX)
  Receive Date: 20230410
  Receipt Date: 20230410
  Transmission Date: 20230722
  Serious: Yes (Other)
  Sender: FDA-Public Use
  Company Number: MX-002147023-NVSC2023MX076210

PATIENT

DRUGS (1)
  1. RUXOLITINIB [Suspect]
     Active Substance: RUXOLITINIB
     Indication: Primary myelofibrosis
     Dosage: 1 DOSAGE FORM, Q12H (IN MORNING AND IN NIGHT)
     Route: 048

REACTIONS (9)
  - Aortic occlusion [Unknown]
  - General physical health deterioration [Unknown]
  - Gait disturbance [Unknown]
  - Decreased interest [Unknown]
  - Full blood count decreased [Unknown]
  - Bone pain [Unknown]
  - Pain in extremity [Unknown]
  - Prostatitis [Unknown]
  - Fatigue [Unknown]
